FAERS Safety Report 9342639 (Version 1)
Quarter: 2013Q2

REPORT INFORMATION
  Report Type: Spontaneous
  Country: US (occurrence: US)
  Receive Date: 20130611
  Receipt Date: 20130611
  Transmission Date: 20140414
  Serious: No
  Sender: FDA-Public Use
  Company Number: US-PFIZER INC-2013174005

PATIENT
  Sex: Female
  Weight: 79.82 kg

DRUGS (3)
  1. LIPITOR [Suspect]
     Indication: BLOOD CHOLESTEROL INCREASED
     Dosage: 40 MG, 1X/DAY
     Dates: start: 2003
  2. GABAPENTIN [Suspect]
     Indication: HYPOAESTHESIA
     Dosage: 800 MG, 2X/DAY
  3. PRAVACHOL [Suspect]
     Indication: BLOOD CHOLESTEROL INCREASED
     Dosage: UNK

REACTIONS (3)
  - Drug ineffective [Unknown]
  - Burning sensation [Recovering/Resolving]
  - Muscle spasms [Recovering/Resolving]
